FAERS Safety Report 8852582 (Version 2)
Quarter: 2013Q1

REPORT INFORMATION
  Report Type: Spontaneous
  Country: SK (occurrence: SK)
  Receive Date: 20121022
  Receipt Date: 20130204
  Transmission Date: 20140127
  Serious: Yes (Death, Life-Threatening, Hospitalization, Other)
  Sender: FDA-Public Use
  Company Number: SK-ASTRAZENECA-2012SE79875

PATIENT
  Age: 25966 Day
  Sex: Male

DRUGS (5)
  1. MERONEM [Suspect]
     Indication: PRODUCT USED FOR UNKNOWN INDICATION
     Route: 042
     Dates: start: 201208, end: 201208
  2. MYCOMAX [Suspect]
     Indication: PRODUCT USED FOR UNKNOWN INDICATION
     Route: 042
     Dates: start: 20120822, end: 20120825
  3. CEFOTAXIME [Suspect]
     Indication: PRODUCT USED FOR UNKNOWN INDICATION
     Route: 042
     Dates: start: 20120809, end: 20120814
  4. CIPHIN [Suspect]
     Indication: PRODUCT USED FOR UNKNOWN INDICATION
     Route: 042
     Dates: start: 20120813, end: 20120816
  5. SULPERASON [Suspect]
     Indication: PRODUCT USED FOR UNKNOWN INDICATION
     Route: 042
     Dates: start: 20120816, end: 20120825

REACTIONS (5)
  - Pseudomembranous colitis [Fatal]
  - Metabolic disorder [Fatal]
  - Cardiopulmonary failure [Fatal]
  - Dehydration [Not Recovered/Not Resolved]
  - Renal failure acute [Unknown]
